FAERS Safety Report 13702938 (Version 2)
Quarter: 2017Q3

REPORT INFORMATION
  Report Type: Spontaneous
  Country: TR (occurrence: TR)
  Receive Date: 20170629
  Receipt Date: 20170707
  Transmission Date: 20171127
  Serious: Yes (Other)
  Sender: FDA-Public Use
  Company Number: TR-FRESENIUS KABI-FK201705545

PATIENT
  Age: 15 Year
  Sex: Female

DRUGS (1)
  1. PARACETAMOL (MANUFACTURER UNKNOWN) [Suspect]
     Active Substance: ACETAMINOPHEN
     Indication: PRODUCT USED FOR UNKNOWN INDICATION
     Route: 048

REACTIONS (5)
  - Loss of consciousness [Unknown]
  - Intentional overdose [Unknown]
  - Suicide attempt [Unknown]
  - Hepatic failure [Unknown]
  - Toxicity to various agents [Unknown]
